FAERS Safety Report 8290048-1 (Version None)
Quarter: 2012Q2

REPORT INFORMATION
  Report Type: 
  Country: None (occurrence: None)
  Receive Date: 20120417
  Receipt Date: 20120411
  Transmission Date: 20120825
  Serious: Yes (Death)
  Sender: FDA-Public Use
  Company Number: US-CELGENEUS-163-21880-12012193

PATIENT
  Sex: Male

DRUGS (9)
  1. REVLIMID [Suspect]
     Indication: MULTIPLE MYELOMA
     Dosage: 25 MILLIGRAM
     Route: 048
     Dates: start: 20070404, end: 20071201
  2. DEXAMETHASONE [Concomitant]
     Route: 065
     Dates: start: 20070401, end: 20071201
  3. VELCADE [Concomitant]
     Route: 065
     Dates: start: 20110329
  4. REVLIMID [Suspect]
     Dosage: 25 MILLIGRAM
     Route: 048
     Dates: start: 20090701
  5. DEXAMETHASONE [Concomitant]
     Route: 065
     Dates: start: 20090701, end: 20100901
  6. REVLIMID [Suspect]
     Dosage: 15 MILLIGRAM
     Route: 048
     Dates: start: 20100201, end: 20100901
  7. REVLIMID [Suspect]
     Dosage: 10 MILLIGRAM
     Route: 048
     Dates: start: 20110201, end: 20110501
  8. ASPIRIN [Concomitant]
     Dosage: 325 MILLIGRAM
     Route: 065
     Dates: start: 20070404
  9. DEXAMETHASONE [Concomitant]
     Route: 065
     Dates: start: 20110329

REACTIONS (3)
  - DIARRHOEA [None]
  - NEUTROPENIA [None]
  - MULTIPLE MYELOMA [None]
